FAERS Safety Report 20567176 (Version 1)
Quarter: 2022Q1

REPORT INFORMATION
  Report Type: Other
  Country: DE (occurrence: None)
  Receive Date: 20220308
  Receipt Date: 20220308
  Transmission Date: 20220423
  Serious: No
  Sender: FDA-Public Use
  Company Number: DE-ROCHE-2867578

PATIENT
  Age: 31 Year
  Sex: Female

DRUGS (10)
  1. OCREVUS [Suspect]
     Active Substance: OCRELIZUMAB
     Indication: Relapsing-remitting multiple sclerosis
     Route: 042
     Dates: start: 20180123
  2. COMIRNATY [Suspect]
     Active Substance: TOZINAMERAN
     Indication: COVID-19 prophylaxis
     Dosage: FIRST VACCINATION DOSE
     Route: 065
     Dates: start: 20210520
  3. COMIRNATY [Suspect]
     Active Substance: TOZINAMERAN
     Dosage: SECOND VACCINATION DOSE
     Route: 065
     Dates: start: 20210708
  4. PANTOPRAZOLE [Concomitant]
     Active Substance: PANTOPRAZOLE
  5. MIRABEGRON [Concomitant]
     Active Substance: MIRABEGRON
  6. PREGABALIN [Concomitant]
     Active Substance: PREGABALIN
  7. GABAPENTIN [Concomitant]
     Active Substance: GABAPENTIN
  8. LOPERAMIDE [Concomitant]
     Active Substance: LOPERAMIDE
  9. DOXEPIN [Concomitant]
     Active Substance: DOXEPIN
  10. LEVOTHYROXINE SODIUM [Concomitant]
     Active Substance: LEVOTHYROXINE SODIUM

REACTIONS (6)
  - Pain in extremity [Not Recovered/Not Resolved]
  - Full blood count abnormal [Recovered/Resolved]
  - Radius fracture [Recovered/Resolved]
  - Fatigue [Not Recovered/Not Resolved]
  - COVID-19 [Recovered/Resolved]
  - Osteoporosis [Not Recovered/Not Resolved]

NARRATIVE: CASE EVENT DATE: 20210520
